FAERS Safety Report 17876428 (Version 3)
Quarter: 2021Q1

REPORT INFORMATION
  Report Type: Spontaneous
  Country: CA (occurrence: CA)
  Receive Date: 20200609
  Receipt Date: 20210303
  Transmission Date: 20210419
  Serious: Yes (Hospitalization)
  Sender: FDA-Public Use
  Company Number: CA-TEVA-2020-CA-1245342

PATIENT
  Age: 52 Year
  Sex: Male

DRUGS (1)
  1. FENTANYL. [Suspect]
     Active Substance: FENTANYL
     Route: 065

REACTIONS (8)
  - Hypoxia [Unknown]
  - Overdose [Unknown]
  - Hypoventilation [Unknown]
  - Amnestic disorder [Unknown]
  - Cerebral ischaemia [Unknown]
  - Parkinsonism [Recovering/Resolving]
  - Toxicity to various agents [Unknown]
  - Leukoencephalopathy [Recovering/Resolving]
